FAERS Safety Report 12351041 (Version 1)
Quarter: 2016Q2

REPORT INFORMATION
  Report Type: Spontaneous
  Country: US (occurrence: None)
  Receive Date: 20160509
  Receipt Date: 20160509
  Transmission Date: 20160815
  Serious: No
  Sender: FDA-Public Use
  Company Number: None

PATIENT
  Age: 37 Year
  Sex: Female
  Weight: 136.08 kg

DRUGS (1)
  1. CERITIZINE [Suspect]
     Active Substance: CETIRIZINE HYDROCHLORIDE
     Indication: MULTIPLE ALLERGIES
     Route: 048
     Dates: start: 20160101, end: 20160505

REACTIONS (5)
  - Withdrawal syndrome [None]
  - Insomnia [None]
  - Nightmare [None]
  - Condition aggravated [None]
  - Pruritus generalised [None]

NARRATIVE: CASE EVENT DATE: 20160506
